FAERS Safety Report 5052721-8 (Version None)
Quarter: 2006Q2

REPORT INFORMATION
  Report Type: 
  Country: None (occurrence: None)
  Receive Date: 20060614
  Receipt Date: 20060307
  Transmission Date: 20061013
  Serious: Yes (Other)
  Sender: FDA-Public Use
  Company Number: 439536

PATIENT
  Sex: Female

DRUGS (6)
  1. BONIVA [Suspect]
     Indication: OSTEOPENIA
  2. VITAMINS NOS (MULTIVITAMIN NOS) [Concomitant]
  3. THYROID DRUG NOS (THYROID DRUG NOS) [Concomitant]
  4. FOLIC ACID [Concomitant]
  5. CALCIUM (CALCIUM) [Concomitant]
  6. ANTIBIOTIC (ANTIBIOTIC NOS) [Concomitant]

REACTIONS (2)
  - DEFAECATION URGENCY [None]
  - FLATULENCE [None]
